FAERS Safety Report 5013307-4 (Version None)
Quarter: 2006Q2

REPORT INFORMATION
  Report Type: 
  Country: None (occurrence: None)
  Receive Date: 20060530
  Receipt Date: 20060407
  Transmission Date: 20061013
  Serious: No
  Sender: FDA-Public Use
  Company Number: US-GLAXOSMITHKLINE-A0600954A

PATIENT
  Age: 16 Year
  Sex: Female

DRUGS (3)
  1. WELLBUTRIN XL [Suspect]
     Indication: DEPRESSION
     Dosage: 300MG PER DAY
     Route: 048
     Dates: start: 20051101
  2. IRON [Concomitant]
  3. M.V.I. [Concomitant]

REACTIONS (2)
  - ACCIDENTAL OVERDOSE [None]
  - NO THERAPEUTIC RESPONSE [None]
